FAERS Safety Report 10233694 (Version 1)
Quarter: 2014Q2

REPORT INFORMATION
  Report Type: Spontaneous
  Country: US (occurrence: US)
  Receive Date: 20140612
  Receipt Date: 20140612
  Transmission Date: 20141212
  Serious: Yes (Death, Other)
  Sender: FDA-Public Use
  Company Number: US-PFIZER INC-2014161264

PATIENT
  Age: 63 Year
  Sex: Female

DRUGS (6)
  1. ZOLOFT [Suspect]
     Dosage: UNK
  2. FENTANYL [Suspect]
     Dosage: UNK
  3. ATIVAN [Suspect]
     Dosage: UNK
  4. NORCO [Suspect]
     Dosage: UNK
  5. SOMA [Suspect]
     Dosage: UNK
  6. DILAUDID [Suspect]
     Dosage: UNK

REACTIONS (4)
  - Completed suicide [Fatal]
  - Drug abuser [Unknown]
  - Contraindication to medical treatment [Unknown]
  - Drug ineffective [Unknown]
